FAERS Safety Report 20837781 (Version 4)
Quarter: 2022Q2

REPORT INFORMATION
  Report Type: Report from Study
  Country: LB (occurrence: LB)
  Receive Date: 20220517
  Receipt Date: 20220607
  Transmission Date: 20220720
  Serious: Yes (Death, Hospitalization, Other)
  Sender: FDA-Public Use
  Company Number: LB-ABBVIE-22K-093-4364791-00

PATIENT
  Age: 76 Year
  Sex: Female
  Weight: 74 kg

DRUGS (13)
  1. VENCLEXTA [Suspect]
     Active Substance: VENETOCLAX
     Indication: Chronic lymphocytic leukaemia
     Route: 048
     Dates: start: 20211115, end: 20211121
  2. VENCLEXTA [Suspect]
     Active Substance: VENETOCLAX
     Route: 048
     Dates: start: 20211122, end: 20211128
  3. VENCLEXTA [Suspect]
     Active Substance: VENETOCLAX
     Route: 048
     Dates: start: 20211129, end: 20211205
  4. VENCLEXTA [Suspect]
     Active Substance: VENETOCLAX
     Route: 048
     Dates: start: 20211206, end: 20211212
  5. VENCLEXTA [Suspect]
     Active Substance: VENETOCLAX
     Route: 048
     Dates: start: 20220122, end: 20220125
  6. VENCLEXTA [Suspect]
     Active Substance: VENETOCLAX
     Route: 048
     Dates: start: 20220126, end: 202202
  7. VENCLEXTA [Suspect]
     Active Substance: VENETOCLAX
     Route: 048
     Dates: start: 20220502, end: 20220504
  8. VENCLEXTA [Suspect]
     Active Substance: VENETOCLAX
     Route: 048
     Dates: start: 20220505, end: 20220511
  9. DULOXETINE [Concomitant]
     Active Substance: DULOXETINE
     Indication: Product used for unknown indication
  10. INDERAL [Concomitant]
     Active Substance: PROPRANOLOL HYDROCHLORIDE
     Indication: Product used for unknown indication
  11. OMEGA 3 [Concomitant]
     Active Substance: CAPSAICIN
     Indication: Product used for unknown indication
  12. CALCIUM [Concomitant]
     Active Substance: CALCIUM
     Indication: Product used for unknown indication
  13. SPORANOX [Concomitant]
     Active Substance: ITRACONAZOLE
     Indication: Product used for unknown indication
     Dates: start: 20220122

REACTIONS (25)
  - Pulmonary oedema [Fatal]
  - Pneumonia [Fatal]
  - Localised oedema [Fatal]
  - Abdominal distension [Fatal]
  - Erythema [Fatal]
  - Pain [Fatal]
  - Back disorder [Fatal]
  - Immunodeficiency [Fatal]
  - Culture positive [Fatal]
  - White blood cell count decreased [Fatal]
  - Abdominal pain upper [Fatal]
  - Dyspnoea [Fatal]
  - Bedridden [Fatal]
  - Pain [Fatal]
  - Abdominal pain upper [Fatal]
  - Hypophagia [Fatal]
  - Non-Hodgkin^s lymphoma [Fatal]
  - Sepsis [Fatal]
  - Hypotension [Fatal]
  - Dyspnoea [Fatal]
  - General physical health deterioration [Fatal]
  - Oedema peripheral [Not Recovered/Not Resolved]
  - Lymphoma [Not Recovered/Not Resolved]
  - Pneumonia [Recovered/Resolved]
  - Vomiting [Recovered/Resolved]

NARRATIVE: CASE EVENT DATE: 20220401
